FAERS Safety Report 24642842 (Version 1)
Quarter: 2024Q4

REPORT INFORMATION
  Report Type: Spontaneous
  Country: GR (occurrence: GR)
  Receive Date: 20241120
  Receipt Date: 20241120
  Transmission Date: 20250114
  Serious: Yes (Other)
  Sender: PFIZER
  Company Number: GR-AstraZeneca-CH-00739606AM

PATIENT
  Sex: Female

DRUGS (2)
  1. MEDROL [Suspect]
     Active Substance: METHYLPREDNISOLONE
     Dosage: UNK
     Route: 065
  2. TRASTUZUMAB DERUXTECAN [Suspect]
     Active Substance: TRASTUZUMAB DERUXTECAN
     Dosage: UNK
     Route: 065
     Dates: start: 202203

REACTIONS (2)
  - Pneumonitis [Unknown]
  - Pulmonary mass [Unknown]
